FAERS Safety Report 5210701-3 (Version None)
Quarter: 2007Q1

REPORT INFORMATION
  Report Type: 
  Country: None (occurrence: None)
  Receive Date: 20070116
  Receipt Date: 20070116
  Transmission Date: 20070707
  Serious: Yes (Life-Threatening, Hospitalization)
  Sender: FDA-Public Use
  Company Number: None

PATIENT
  Age: 81 Year
  Sex: Male
  Weight: 57.5 kg

DRUGS (1)
  1. GLYBURIDE [Suspect]
     Dosage: 5 MCG QAM

REACTIONS (1)
  - HYPOGLYCAEMIA [None]
